FAERS Safety Report 13929798 (Version 2)
Quarter: 2018Q2

REPORT INFORMATION
  Report Type: Report from Study
  Country: JP (occurrence: JP)
  Receive Date: 20170901
  Receipt Date: 20180404
  Transmission Date: 20180711
  Serious: Yes (Death, Hospitalization)
  Sender: FDA-Public Use
  Company Number: JP-ACTELION-A-CH2017-157583

PATIENT
  Age: 35 Year
  Sex: Male
  Weight: 47 kg

DRUGS (20)
  1. UPTRAVI [Suspect]
     Active Substance: SELEXIPAG
     Indication: PULMONARY ARTERIAL HYPERTENSION
     Dosage: 200 ?G, QD
     Route: 048
     Dates: start: 20170531, end: 20170606
  2. LASIX [Concomitant]
     Active Substance: FUROSEMIDE
     Dosage: 50 MG, UNK
     Dates: start: 20170704, end: 20170704
  3. UPTRAVI [Suspect]
     Active Substance: SELEXIPAG
     Dosage: 800 ?G, BID
     Route: 048
     Dates: start: 20170620, end: 20170705
  4. UPTRAVI [Suspect]
     Active Substance: SELEXIPAG
     Dosage: 200 ?G, BID
     Route: 048
     Dates: start: 20170607, end: 20170616
  5. AMIODARONE [Concomitant]
     Active Substance: AMIODARONE
     Dosage: 200 MG, UNK
     Dates: end: 20170705
  6. SAMSCA [Concomitant]
     Active Substance: TOLVAPTAN
     Dosage: 15 MG, UNK
     Dates: end: 20170707
  7. LASIX [Concomitant]
     Active Substance: FUROSEMIDE
     Dosage: 20 MG, UNK
     Dates: start: 20170622, end: 20170702
  8. DOBUTREX [Concomitant]
     Active Substance: DOBUTAMINE HYDROCHLORIDE
     Dosage: UNK
     Dates: start: 20170624, end: 20170624
  9. DOBUTREX [Concomitant]
     Active Substance: DOBUTAMINE HYDROCHLORIDE
     Dosage: UNK
     Dates: start: 20170704, end: 20170704
  10. TAKECAB [Concomitant]
     Active Substance: VONOPRAZAN FUMURATE
     Dosage: 20 MG, UNK
     Dates: start: 20170620, end: 20170703
  11. ADCIRCA [Concomitant]
     Active Substance: TADALAFIL
     Indication: PULMONARY ARTERIAL HYPERTENSION
     Dosage: 40 MG, UNK
     Dates: end: 20170710
  12. FUROSEMIDE. [Concomitant]
     Active Substance: FUROSEMIDE
     Dosage: 60 MG, UNK
     Dates: end: 20170705
  13. CARVEDILOL. [Concomitant]
     Active Substance: CARVEDILOL
     Dosage: 5 MG, UNK
     Dates: end: 20170705
  14. DOBUTREX [Concomitant]
     Active Substance: DOBUTAMINE HYDROCHLORIDE
     Dosage: UNK
     Dates: start: 20170705, end: 20170705
  15. UPTRAVI [Suspect]
     Active Substance: SELEXIPAG
     Dosage: 1000 ?G, QD
     Route: 048
     Dates: start: 20170617, end: 20170619
  16. OPSUMIT [Concomitant]
     Active Substance: MACITENTAN
     Indication: PULMONARY ARTERIAL HYPERTENSION
     Dosage: 10 MG, UNK
     Route: 048
     Dates: end: 20170710
  17. SPIRONOLACTONE. [Concomitant]
     Active Substance: SPIRONOLACTONE
     Indication: PULMONARY ARTERIAL HYPERTENSION
     Dosage: 100 MG, UNK
     Dates: end: 20170705
  18. TRICHLORMETHIAZIDE [Concomitant]
     Active Substance: TRICHLORMETHIAZIDE
     Dosage: 2 MG, UNK
     Dates: end: 20170705
  19. LASIX [Concomitant]
     Active Substance: FUROSEMIDE
     Dosage: 30 MG, UNK
     Dates: start: 20170705, end: 20170705
  20. DOBUTREX [Concomitant]
     Active Substance: DOBUTAMINE HYDROCHLORIDE
     Dosage: UNK
     Dates: start: 20170625, end: 20170703

REACTIONS (18)
  - Malaise [Unknown]
  - Pyrexia [Recovered/Resolved]
  - Oliguria [Unknown]
  - Diarrhoea [Recovered/Resolved]
  - Dizziness [Unknown]
  - Cardiac failure congestive [Fatal]
  - Concomitant disease aggravated [Unknown]
  - Palpitations [Unknown]
  - Sleep disorder [Unknown]
  - Abdominal discomfort [Unknown]
  - Weight increased [Unknown]
  - Arrhythmia [Unknown]
  - Abdominal pain upper [Unknown]
  - Haemoptysis [Unknown]
  - Abdominal distension [Unknown]
  - Supraventricular tachycardia [Unknown]
  - Ascites [Unknown]
  - Tachycardia [Not Recovered/Not Resolved]

NARRATIVE: CASE EVENT DATE: 20170531
